FAERS Safety Report 6454909-8 (Version None)
Quarter: 2009Q4

REPORT INFORMATION
  Report Type: 
  Country: None (occurrence: None)
  Receive Date: 20091124
  Receipt Date: 20091112
  Transmission Date: 20100525
  Serious: Yes (Death)
  Sender: FDA-Public Use
  Company Number: US-ELI_LILLY_AND_COMPANY-US200911003905

PATIENT
  Sex: Male

DRUGS (7)
  1. ZYPREXA [Suspect]
     Indication: DEPRESSION
     Dosage: 1.25 MG, DAILY (1/D)
     Dates: start: 20090826, end: 20090831
  2. AMBIEN [Concomitant]
     Dosage: 10 MG, UNK
  3. COZAAR [Concomitant]
     Dosage: 50 MG, UNK
  4. ATENOLOL [Concomitant]
     Dosage: 100 MG, UNK
  5. PRILOSEC [Concomitant]
     Dosage: 1 D/F, UNK
  6. LEXAPRO [Concomitant]
     Dosage: 20 MEQ, UNK
     Dates: start: 20090810
  7. LEXAPRO [Concomitant]
     Dosage: 10 MG, UNK

REACTIONS (4)
  - COMPLETED SUICIDE [None]
  - INTENTIONAL DRUG MISUSE [None]
  - OFF LABEL USE [None]
  - PSYCHOTIC BEHAVIOUR [None]
